FAERS Safety Report 8285199-1 (Version None)
Quarter: 2012Q2

REPORT INFORMATION
  Report Type: 
  Country: None (occurrence: None)
  Receive Date: 20120413
  Receipt Date: 20111129
  Transmission Date: 20120825
  Serious: No
  Sender: FDA-Public Use
  Company Number: US-ASTRAZENECA-2010SE42508

PATIENT
  Age: 62 Year
  Sex: Female

DRUGS (4)
  1. NEXIUM [Suspect]
     Route: 048
  2. COLON MEDICINE [Concomitant]
     Indication: GASTROINTESTINAL DISORDER
  3. PRILOSEC [Suspect]
     Route: 048
  4. PRILOSEC OTC [Suspect]
     Route: 048

REACTIONS (18)
  - INJURY [None]
  - BURNING SENSATION [None]
  - VOMITING [None]
  - DYSPHAGIA [None]
  - DRUG PRESCRIBING ERROR [None]
  - ABDOMINAL DISCOMFORT [None]
  - DRUG DOSE OMISSION [None]
  - APHAGIA [None]
  - THERAPEUTIC RESPONSE UNEXPECTED [None]
  - CHOKING [None]
  - IRRITABLE BOWEL SYNDROME [None]
  - INSOMNIA [None]
  - DRUG INEFFECTIVE [None]
  - ACCIDENT AT WORK [None]
  - BACK PAIN [None]
  - GASTROOESOPHAGEAL REFLUX DISEASE [None]
  - MALAISE [None]
  - ABDOMINAL PAIN UPPER [None]
